FAERS Safety Report 24903435 (Version 1)
Quarter: 2025Q1

REPORT INFORMATION
  Report Type: Spontaneous
  Country: RU (occurrence: RU)
  Receive Date: 20250130
  Receipt Date: 20250130
  Transmission Date: 20250409
  Serious: Yes (Death, Hospitalization, Other)
  Sender: AZURITY PHARMACEUTICALS
  Company Number: RU-AZURITY PHARMACEUTICALS, INC.-AZR202501-000389

PATIENT
  Age: 68 Year
  Sex: Female

DRUGS (3)
  1. METHOTREXATE [Suspect]
     Active Substance: METHOTREXATE
     Indication: Rheumatoid arthritis
     Route: 048
  2. Azilsartan medoxomil plus chlorthalidone [Concomitant]
     Indication: Product used for unknown indication
     Route: 065
  3. Soluble insulin [Concomitant]
     Indication: Product used for unknown indication
     Route: 065

REACTIONS (10)
  - Haemorrhage [Unknown]
  - Epistaxis [Unknown]
  - Dysphagia [Unknown]
  - Septic shock [Fatal]
  - Mouth ulceration [Unknown]
  - Respiratory failure [Unknown]
  - Febrile neutropenia [Unknown]
  - Pancytopenia [Unknown]
  - Overdose [Unknown]
  - Inappropriate schedule of product administration [Unknown]
